FAERS Safety Report 18388595 (Version 1)
Quarter: 2020Q4

REPORT INFORMATION
  Report Type: Spontaneous
  Country: US (occurrence: US)
  Receive Date: 20201015
  Receipt Date: 20201015
  Transmission Date: 20210114
  Serious: Yes (Other)
  Sender: FDA-Public Use
  Company Number: US-TEVA-2020-US-1838343

PATIENT
  Sex: Female

DRUGS (1)
  1. MUPIROCIN OINTMENT USP TEVA [Suspect]
     Active Substance: MUPIROCIN
     Indication: RASH
     Route: 061

REACTIONS (3)
  - Precancerous skin lesion [Unknown]
  - Application site erythema [Unknown]
  - Product formulation issue [Unknown]
